FAERS Safety Report 18963097 (Version 1)
Quarter: 2021Q1

REPORT INFORMATION
  Report Type: Spontaneous
  Country: NL (occurrence: ES)
  Receive Date: 20210303
  Receipt Date: 20210303
  Transmission Date: 20210420
  Serious: Yes (Death, Hospitalization, Other)
  Sender: FDA-Public Use
  Company Number: ES-FRESENIUS KABI-FK202101914

PATIENT
  Age: 26 Year
  Sex: Male
  Weight: 90 kg

DRUGS (16)
  1. METAMIZOLE MAGNESIUM [Suspect]
     Active Substance: METAMIZOLE MAGNESIUM
     Indication: PRODUCT USED FOR UNKNOWN INDICATION
     Dosage: ADMINISTRATION IN HOSPITAL EMERGENCIES
     Route: 065
     Dates: start: 20210201, end: 20210201
  2. SALBUTAMOL [Concomitant]
     Active Substance: ALBUTEROL
     Indication: PRODUCT USED FOR UNKNOWN INDICATION
     Dosage: ADMINISTRATION IN HOSPITAL EMERGENCIES
     Route: 065
     Dates: start: 20210130, end: 20210130
  3. METAMIZOLE MAGNESIUM [Suspect]
     Active Substance: METAMIZOLE MAGNESIUM
     Indication: PRODUCT USED FOR UNKNOWN INDICATION
     Dosage: INTEGRATED WITH PARACETAMOL?NOLOTIL 575 MG HARD CAPSULES
     Route: 048
     Dates: start: 20210201
  4. FORMOTEROL FUMARATE/BUDESONIDE [Concomitant]
     Active Substance: BUDESONIDE\FORMOTEROL FUMARATE
     Indication: PRODUCT USED FOR UNKNOWN INDICATION
     Dosage: SYMBICORT 160 MICROGRAMS / 4.5 MICROGRAMS / INHALATION SUSPENSION FOR INHALATION IN PRESSURE CONTAIN
     Route: 055
     Dates: start: 20201103
  5. PARACETAMOL (MANUFACTURER UNKNOWN) [Suspect]
     Active Substance: ACETAMINOPHEN
     Dosage: ADMINISTRATION IN HOSPITAL EMERGENCIES
     Route: 065
     Dates: start: 20210201, end: 20210201
  6. AMOXICILLIN/CLAVULANIC ACID [Suspect]
     Active Substance: AMOXICILLIN\CLAVULANIC ACID
     Indication: PRODUCT USED FOR UNKNOWN INDICATION
     Dosage: AUGMENTINE 875/125 1/8 HOURS FOR TEN DAYS
     Route: 048
     Dates: start: 20210201
  7. DEXKETOPROFEN TROMETAMOL [Suspect]
     Active Substance: DEXKETOPROFEN TROMETAMOL
     Indication: PRODUCT USED FOR UNKNOWN INDICATION
     Dosage: ADMINISTRATION IN HOSPITAL EMERGENCIES
     Route: 065
     Dates: start: 20210201, end: 20210201
  8. METHYLPREDNISOLONE. [Suspect]
     Active Substance: METHYLPREDNISOLONE
     Indication: PRODUCT USED FOR UNKNOWN INDICATION
     Dosage: ADMINISTRATION IN HOSPITAL EMERGENCIES
     Route: 065
     Dates: start: 20210130, end: 20210130
  9. PREDNISONE. [Suspect]
     Active Substance: PREDNISONE
     Indication: PRODUCT USED FOR UNKNOWN INDICATION
     Dosage: 1?0?0?PREDNISONE 30 MG TABLET
     Route: 048
     Dates: start: 20210130
  10. COMIRNATY [Suspect]
     Active Substance: TOZINAMERAN
     Indication: COVID-19 IMMUNISATION
     Dosage: 1 DOSE ADMINISTERED ? ADMINISTRATION SITE: UNKNOWN?PFIZER / BIONTECH? COMIRNARTY? COVID?19 MRNA VACC
     Route: 030
     Dates: start: 20210114, end: 20210114
  11. PARACETAMOL [Suspect]
     Active Substance: ACETAMINOPHEN
     Indication: PRODUCT USED FOR UNKNOWN INDICATION
     Dosage: 1?1?1 IF YOU NEED?PARACETAMOL 1,000 MG TABLET
     Route: 048
     Dates: start: 20210130
  12. IPRATROPIUM BROMIDE. [Concomitant]
     Active Substance: IPRATROPIUM BROMIDE
     Indication: PRODUCT USED FOR UNKNOWN INDICATION
     Dosage: ADMINISTRATION IN HOSPITAL EMERGENCIES
     Route: 065
     Dates: start: 20210130, end: 20210130
  13. SALBUTAMOL [Concomitant]
     Active Substance: ALBUTEROL
     Indication: PRODUCT USED FOR UNKNOWN INDICATION
     Dosage: REQUEST
     Route: 055
     Dates: start: 20210130
  14. PARACETAMOL (MANUFACTURER UNKNOWN) [Suspect]
     Active Substance: ACETAMINOPHEN
     Indication: PRODUCT USED FOR UNKNOWN INDICATION
     Dosage: ADMINISTRATION IN HOSPITAL EMERGENCIES
     Route: 065
     Dates: start: 20210130, end: 20210130
  15. TOCILIZUMAB. [Suspect]
     Active Substance: TOCILIZUMAB
     Indication: COVID-19 PNEUMONIA
     Route: 065
     Dates: start: 202011, end: 202011
  16. SODIUM CHLORIDE. [Concomitant]
     Active Substance: SODIUM CHLORIDE
     Indication: PRODUCT USED FOR UNKNOWN INDICATION
     Dosage: ADMINISTRATION IN HOSPITAL EMERGENCIES?SERFIS ? PHYSIOLOGICAL SERUM (UNSPECIFIED)
     Route: 065
     Dates: start: 20210201, end: 20210201

REACTIONS (2)
  - Hepatitis acute [Fatal]
  - Haemophagocytic lymphohistiocytosis [Fatal]

NARRATIVE: CASE EVENT DATE: 20210204
